FAERS Safety Report 9865465 (Version 1)
Quarter: 2014Q1

REPORT INFORMATION
  Report Type: Spontaneous
  Country: US (occurrence: US)
  Receive Date: 20140203
  Receipt Date: 20140203
  Transmission Date: 20141002
  Serious: No
  Sender: FDA-Public Use
  Company Number: US-ALLERGAN-1307917US

PATIENT
  Age: 69 Year
  Sex: Female

DRUGS (14)
  1. RESTASIS [Suspect]
     Indication: DRY EYE
     Dosage: 2 GTT, BID
     Route: 047
     Dates: start: 2009
  2. REMICADE [Concomitant]
     Indication: RHEUMATOID ARTHRITIS
     Dosage: UNK
     Route: 042
  3. PREDNISONE [Concomitant]
     Indication: RHEUMATOID ARTHRITIS
     Dosage: 5 MG, QD
     Route: 048
  4. FOLIC ACID [Concomitant]
     Indication: NUTRITIONAL SUPPLEMENTATION
     Dosage: 1 MG, QD
     Route: 048
  5. PANTOPRAZOLE [Concomitant]
     Indication: GASTROOESOPHAGEAL REFLUX DISEASE
     Dosage: UNK
     Route: 048
  6. VITAMIN D                          /00107901/ [Concomitant]
     Indication: NUTRITIONAL SUPPLEMENTATION
     Dosage: UNK
  7. KLONOPIN [Concomitant]
     Indication: HEADACHE
     Dosage: 1 MG, UNK
     Route: 048
  8. GABAPENTIN [Concomitant]
     Indication: FIBROMYALGIA
     Dosage: 300 MG, BID
     Route: 048
  9. RECLAST [Concomitant]
     Indication: OSTEOPOROSIS
     Dosage: UNK
     Route: 042
  10. CELEBREX [Concomitant]
     Indication: PAIN
     Dosage: UNK UNK, PRN
     Route: 048
  11. GENERIC VICODIN [Concomitant]
     Indication: PAIN
     Dosage: UNK, PRN
     Route: 048
  12. REFRESH [Concomitant]
     Indication: DRY EYE
     Dosage: UNK
     Route: 047
  13. SYSTANE [Concomitant]
     Indication: DRY EYE
     Dosage: UNK
     Route: 047
  14. AMOXICILLIN [Concomitant]
     Indication: PROPHYLAXIS
     Dosage: 500 MG, UNK
     Route: 048

REACTIONS (1)
  - Drug ineffective [Unknown]
